FAERS Safety Report 16675166 (Version 8)
Quarter: 2020Q4

REPORT INFORMATION
  Report Type: Spontaneous
  Country: US (occurrence: US)
  Receive Date: 20190806
  Receipt Date: 20201023
  Transmission Date: 20210113
  Serious: Yes (Hospitalization)
  Sender: FDA-Public Use
  Company Number: US-PFIZER INC-2019337053

PATIENT
  Age: 35 Year
  Sex: Female
  Weight: 86 kg

DRUGS (11)
  1. LYRICA [Suspect]
     Active Substance: PREGABALIN
     Indication: NEURALGIA
     Dosage: 200 MG, THREE TIMES A DAY
     Dates: start: 2014
  2. KETAMINE [Concomitant]
     Active Substance: KETAMINE
     Dosage: UNK
     Dates: start: 201508
  3. LYRICA [Suspect]
     Active Substance: PREGABALIN
     Dosage: 40 MG, THREE TIMES A DAY (TWO 20 MG, THREE TIMES A DAY)
     Dates: start: 201508
  4. LYRICA [Suspect]
     Active Substance: PREGABALIN
     Indication: NEUROPATHY PERIPHERAL
     Dosage: 400 MG, THREE TIMES A DAY (2 CAPSULE, THREE TIMES PER DAY)
     Route: 048
     Dates: start: 2014
  5. MSIR [Concomitant]
     Active Substance: MORPHINE SULFATE
     Dosage: UNK
     Dates: start: 200208
  6. MS CONTIN [Concomitant]
     Active Substance: MORPHINE SULFATE
     Dosage: UNK
     Dates: start: 200208
  7. CYMBALTA [Concomitant]
     Active Substance: DULOXETINE HYDROCHLORIDE
     Dosage: UNK
     Dates: start: 201508
  8. CARBAMAZEPINE. [Concomitant]
     Active Substance: CARBAMAZEPINE
     Dosage: UNK
     Dates: start: 201508
  9. TEGRETOL [Concomitant]
     Active Substance: CARBAMAZEPINE
     Dosage: UNK
     Dates: start: 201508
  10. LYRICA [Suspect]
     Active Substance: PREGABALIN
     Dosage: 2 CAPSULES, THREE TIMES A DAY
     Route: 048
  11. MSIR [Concomitant]
     Active Substance: MORPHINE SULFATE
     Indication: PAIN
     Dosage: 60 MG, UNK

REACTIONS (4)
  - Procedural pain [Not Recovered/Not Resolved]
  - Pain in extremity [Not Recovered/Not Resolved]
  - Sickle cell disease [Unknown]
  - Prescribed overdose [Unknown]

NARRATIVE: CASE EVENT DATE: 2014
